FAERS Safety Report 7445214-1 (Version None)
Quarter: 2011Q2

REPORT INFORMATION
  Report Type: 
  Country: None (occurrence: None)
  Receive Date: 20110427
  Receipt Date: 20110427
  Transmission Date: 20111010
  Serious: Yes (Hospitalization)
  Sender: FDA-Public Use
  Company Number: None

PATIENT
  Sex: Male
  Weight: 69.5 kg

DRUGS (2)
  1. CASODEX [Suspect]
     Dosage: 6750 MG
  2. ZOLADEX [Suspect]
     Dosage: 21.6 MG

REACTIONS (2)
  - DYSPNOEA EXERTIONAL [None]
  - TROPONIN I INCREASED [None]
